FAERS Safety Report 21959538 (Version 1)
Quarter: 2023Q1

REPORT INFORMATION
  Report Type: Spontaneous
  Country: US (occurrence: None)
  Receive Date: 20230203
  Receipt Date: 20230203
  Transmission Date: 20230417
  Serious: Yes (Hospitalization)
  Sender: FDA-Public Use
  Company Number: None

PATIENT
  Sex: Male

DRUGS (2)
  1. REMICADE [Suspect]
     Active Substance: INFLIXIMAB
     Indication: Crohn^s disease
     Dosage: OTHER FREQUENCY : EVERY 6 WEEKS;?
     Route: 042
     Dates: start: 20220818
  2. REMICADE [Suspect]
     Active Substance: INFLIXIMAB
     Indication: Rectal haemorrhage

REACTIONS (1)
  - Intestinal stenosis [None]
